FAERS Safety Report 20488301 (Version 1)
Quarter: 2022Q1

REPORT INFORMATION
  Report Type: Spontaneous
  Country: US (occurrence: US)
  Receive Date: 20220218
  Receipt Date: 20220218
  Transmission Date: 20220424
  Serious: No
  Sender: FDA-Public Use
  Company Number: US-ViiV Healthcare Limited-75559

PATIENT
  Sex: Male

DRUGS (3)
  1. CABENUVA [Suspect]
     Active Substance: CABOTEGRAVIR\RILPIVIRINE
     Indication: Product used for unknown indication
     Dosage: UNK
     Dates: start: 20211230
  2. CABENUVA [Suspect]
     Active Substance: CABOTEGRAVIR\RILPIVIRINE
  3. CABENUVA [Suspect]
     Active Substance: CABOTEGRAVIR\RILPIVIRINE

REACTIONS (17)
  - Lymphadenopathy [Not Recovered/Not Resolved]
  - Swelling face [Unknown]
  - Tongue disorder [Unknown]
  - Throat irritation [Unknown]
  - Oral discomfort [Unknown]
  - Headache [Not Recovered/Not Resolved]
  - Fatigue [Not Recovered/Not Resolved]
  - Faeces pale [Unknown]
  - Abdominal pain [Unknown]
  - Pyrexia [Unknown]
  - Musculoskeletal pain [Not Recovered/Not Resolved]
  - Nausea [Unknown]
  - Sleep disorder [Unknown]
  - Dizziness [Unknown]
  - Rash [Unknown]
  - Injection site pain [Unknown]
  - Abnormal dreams [Unknown]
